FAERS Safety Report 4560684-4 (Version None)
Quarter: 2005Q1

REPORT INFORMATION
  Report Type: 
  Country: None (occurrence: None)
  Receive Date: 20050121
  Receipt Date: 20050112
  Transmission Date: 20050727
  Serious: Yes (Other)
  Sender: FDA-Public Use
  Company Number: 2005-01-1138

PATIENT
  Age: 57 Year
  Sex: Female

DRUGS (1)
  1. GENTAMICIN [Suspect]
     Dosage: 2 DOSES

REACTIONS (3)
  - DIZZINESS [None]
  - GAIT DISTURBANCE [None]
  - INFLUENZA LIKE ILLNESS [None]
